FAERS Safety Report 21535131 (Version 1)
Quarter: 2022Q4

REPORT INFORMATION
  Report Type: Spontaneous
  Country: FR (occurrence: FR)
  Receive Date: 20221101
  Receipt Date: 20221101
  Transmission Date: 20230112
  Serious: Yes (Death)
  Sender: FDA-Public Use
  Company Number: None

PATIENT
  Age: 41 Year
  Sex: Male
  Weight: 80 kg

DRUGS (7)
  1. VALIUM [Suspect]
     Active Substance: DIAZEPAM
     Indication: Product used for unknown indication
     Dosage: 20MG
     Route: 050
     Dates: start: 20221012, end: 20221012
  2. KETAMINE HYDROCHLORIDE [Suspect]
     Active Substance: KETAMINE HYDROCHLORIDE
     Indication: Pain
     Dosage: 50MG
     Route: 050
     Dates: start: 20221012, end: 20221012
  3. MIDAZOLAM HYDROCHLORIDE [Suspect]
     Active Substance: MIDAZOLAM HYDROCHLORIDE
     Indication: Product used for unknown indication
     Dosage: 3MG
     Route: 050
     Dates: start: 20221012, end: 20221012
  4. LIDOCAINE [Suspect]
     Active Substance: LIDOCAINE
     Indication: Pneumothorax
     Dosage: 20MG/ML
     Dates: start: 20221012, end: 20221012
  5. MORPHINE HYDROCHLORIDE [Suspect]
     Active Substance: MORPHINE HYDROCHLORIDE
     Indication: Pain
     Dosage: 3MG PUIS 7MG
     Route: 050
     Dates: start: 20221012, end: 20221012
  6. MORPHINE HYDROCHLORIDE [Suspect]
     Active Substance: MORPHINE HYDROCHLORIDE
     Indication: Pain
     Dosage: 2MG/H
     Route: 050
     Dates: start: 20221012, end: 20221012
  7. KETOPROFEN [Suspect]
     Active Substance: KETOPROFEN
     Indication: Pain
     Dosage: 100MG
     Route: 050
     Dates: start: 20221012, end: 20221012

REACTIONS (3)
  - Myocardial infarction [Fatal]
  - Ventricular fibrillation [Fatal]
  - Respiratory arrest [Fatal]

NARRATIVE: CASE EVENT DATE: 20221012
